FAERS Safety Report 7058859-8 (Version None)
Quarter: 2010Q4

REPORT INFORMATION
  Report Type: 
  Country: None (occurrence: None)
  Receive Date: 20101022
  Receipt Date: 20101015
  Transmission Date: 20110411
  Serious: Yes (Hospitalization)
  Sender: FDA-Public Use
  Company Number: GB-ABBOTT-10P-167-0679292-00

PATIENT
  Age: 66 Year
  Sex: Male

DRUGS (2)
  1. PROSTAP 3 [Suspect]
     Indication: PRODUCT USED FOR UNKNOWN INDICATION
     Dates: start: 20101015
  2. INSULIN [Concomitant]
     Indication: TYPE 1 DIABETES MELLITUS

REACTIONS (3)
  - CIRCULATORY COLLAPSE [None]
  - ELECTROCARDIOGRAM CHANGE [None]
  - HYPOTENSION [None]
